FAERS Safety Report 22166337 (Version 1)
Quarter: 2023Q1

REPORT INFORMATION
  Report Type: Spontaneous
  Country: US (occurrence: None)
  Receive Date: 20230331
  Receipt Date: 20230331
  Transmission Date: 20230418
  Serious: Yes (Other)
  Sender: FDA-Public Use
  Company Number: None

PATIENT
  Age: 21 Year
  Sex: Male

DRUGS (1)
  1. RINVOQ [Suspect]
     Active Substance: UPADACITINIB
     Indication: Dermatitis
     Dosage: FREQUENCY : DAILY;?
     Route: 048
     Dates: start: 20220614, end: 20230331

REACTIONS (1)
  - Lymphoma [None]

NARRATIVE: CASE EVENT DATE: 20230331
